FAERS Safety Report 11697460 (Version 2)
Quarter: 2016Q4

REPORT INFORMATION
  Report Type: Spontaneous
  Country: US (occurrence: US)
  Receive Date: 20151104
  Receipt Date: 20161019
  Transmission Date: 20170206
  Serious: Yes (Other)
  Sender: FDA-Public Use
  Company Number: US-PFIZER INC-2015354465

PATIENT
  Age: 46 Year
  Sex: Female

DRUGS (11)
  1. DOCUSATE [Concomitant]
     Active Substance: DOCUSATE
     Dosage: UNK
  2. DULOXETINE. [Concomitant]
     Active Substance: DULOXETINE
     Dosage: UNK
  3. IBRANCE [Suspect]
     Active Substance: PALBOCICLIB
     Dosage: 100 MG, CYCLIC(TAKE 1 CAPSULE BY MOUTH DAILY, 21 DAYS ON AND 7 DAYS OFF.)
     Route: 048
     Dates: start: 201610
  4. HYDROCODONE [Concomitant]
     Active Substance: HYDROCODONE
     Dosage: UNK
  5. LETROZOLE. [Concomitant]
     Active Substance: LETROZOLE
     Dosage: UNK
  6. ONDANSETRON [Concomitant]
     Active Substance: ONDANSETRON
     Dosage: UNK
  7. APAP [Concomitant]
     Active Substance: ACETAMINOPHEN
     Dosage: UNK
  8. LORAZEPAM. [Concomitant]
     Active Substance: LORAZEPAM
     Dosage: UNK
  9. IBRANCE [Suspect]
     Active Substance: PALBOCICLIB
     Indication: BREAST CANCER FEMALE
     Dosage: 125 MG, CYCLIC (QD 21/28 DAYS )
     Route: 048
     Dates: start: 20150811, end: 20151015
  10. LIDOCAINE. [Concomitant]
     Active Substance: LIDOCAINE
     Dosage: UNK
  11. PROCHLORPERAZINE. [Concomitant]
     Active Substance: PROCHLORPERAZINE
     Dosage: UNK

REACTIONS (10)
  - Neutropenia [Unknown]
  - Nausea [Unknown]
  - Neck pain [Unknown]
  - Rhinorrhoea [Unknown]
  - Chest discomfort [Unknown]
  - Cough [Unknown]
  - Seasonal allergy [Unknown]
  - Back pain [Unknown]
  - Musculoskeletal chest pain [Unknown]
  - Paraesthesia [Not Recovered/Not Resolved]
